FAERS Safety Report 6615030-9 (Version None)
Quarter: 2010Q1

REPORT INFORMATION
  Report Type: 
  Country: None (occurrence: None)
  Receive Date: 20100305
  Receipt Date: 20090310
  Transmission Date: 20100710
  Serious: No
  Sender: FDA-Public Use
  Company Number: DE-BAYER-200831376GPV

PATIENT
  Age: 69 Year
  Sex: Female

DRUGS (9)
  1. ALEMTUZUMAB [Suspect]
     Indication: T-CELL LYMPHOMA
     Dosage: ONCE PER DAY DAY 1 AND 2
     Route: 058
     Dates: start: 20081028, end: 20081112
  2. PREDNISONE [Suspect]
     Indication: T-CELL LYMPHOMA
     Dosage: ON DAYS 1-5 OF A-CHOP-14
     Route: 048
     Dates: start: 20081028, end: 20081115
  3. CYCLOPHOSPHAMIDE [Suspect]
     Indication: T-CELL LYMPHOMA
     Dosage: ON DAY 1 OF A-CHOP-14
     Route: 042
     Dates: start: 20081028, end: 20081111
  4. DOXORUBICIN HCL [Suspect]
     Indication: T-CELL LYMPHOMA
     Dosage: ON DAY 1 OF A-CHOP-14
     Route: 042
     Dates: start: 20081028, end: 20081111
  5. VINCRISTINE [Suspect]
     Indication: T-CELL LYMPHOMA
     Dosage: ON DAY 1 OF A-CHOP-14
     Route: 042
     Dates: start: 20081028, end: 20081111
  6. NEUPOGEN [Suspect]
     Indication: T-CELL LYMPHOMA
     Dosage: ONCE PER DAY ON DAY 4-12 OF A-CHOP-14
     Route: 058
     Dates: start: 20081031, end: 20081118
  7. AMITRIPTYLINE HCL [Concomitant]
     Indication: ANXIETY
     Route: 048
     Dates: start: 20080901
  8. HYDROCHLOROTHIAZIDE [Concomitant]
     Indication: HYPERTENSION
     Route: 048
     Dates: start: 19930101
  9. METOPROLOLSUCCINAT [Concomitant]
     Indication: HYPERTENSION
     Route: 048
     Dates: start: 19930101

REACTIONS (1)
  - PULMONARY MYCOSIS [None]
